FAERS Safety Report 12709096 (Version 2)
Quarter: 2018Q4

REPORT INFORMATION
  Report Type: Spontaneous
  Country: US (occurrence: US)
  Receive Date: 20160901
  Receipt Date: 20181030
  Transmission Date: 20190204
  Serious: No
  Sender: FDA-Public Use
  Company Number: US-JAZZ-2016-US-008528

PATIENT
  Sex: Female
  Weight: 89.8 kg

DRUGS (32)
  1. XYREM [Suspect]
     Active Substance: SODIUM OXYBATE
     Dosage: 5 G, SECOND DOSE
     Route: 048
     Dates: start: 200804, end: 2008
  2. CLOTRIMAZOLE. [Concomitant]
     Active Substance: CLOTRIMAZOLE
  3. PROBIOTICA [Concomitant]
     Active Substance: PROBIOTICS NOS
  4. XYREM [Suspect]
     Active Substance: SODIUM OXYBATE
     Indication: SLEEP DISORDER
     Dosage: 2.25 G, BID
     Route: 048
     Dates: start: 200310, end: 200311
  5. XYREM [Suspect]
     Active Substance: SODIUM OXYBATE
     Dosage: 9 G, FIRST DOSE
     Route: 048
     Dates: start: 200811, end: 2010
  6. LORATADINE. [Concomitant]
     Active Substance: LORATADINE
  7. CLONIDINE HCL [Concomitant]
     Active Substance: CLONIDINE HYDROCHLORIDE
  8. HYDROCORTISONE CIPIONATE [Concomitant]
     Active Substance: HYDROCORTISONE CYPIONATE
  9. CURCUMIN [Concomitant]
     Active Substance: CURCUMIN
  10. TAMSULOSIN HYDROCHLORIDE. [Concomitant]
     Active Substance: TAMSULOSIN HYDROCHLORIDE
  11. OMEPRAZOLE. [Concomitant]
     Active Substance: OMEPRAZOLE
  12. XYREM [Suspect]
     Active Substance: SODIUM OXYBATE
     Dosage: DOSE ADJUSTMENTS
     Route: 048
  13. AXIRON [Concomitant]
     Active Substance: TESTOSTERONE
  14. CLINDAMYCIN PHOSPHATE. [Concomitant]
     Active Substance: CLINDAMYCIN PHOSPHATE
  15. IBUPROFEN. [Concomitant]
     Active Substance: IBUPROFEN
  16. FLUTICASONE PROPIONATE. [Concomitant]
     Active Substance: FLUTICASONE PROPIONATE
  17. SORBITOL. [Concomitant]
     Active Substance: SORBITOL
  18. XYREM [Suspect]
     Active Substance: SODIUM OXYBATE
     Dosage: 5 G, SECOND DOSE
     Route: 048
     Dates: start: 200811, end: 2010
  19. XYREM [Suspect]
     Active Substance: SODIUM OXYBATE
     Indication: FIBROMYALGIA
     Dosage: DOSE ADJUSTMENTS
     Route: 048
  20. DILTIAZEM HYDROCHLORIDE. [Concomitant]
     Active Substance: DILTIAZEM HYDROCHLORIDE
  21. VALTREX [Concomitant]
     Active Substance: VALACYCLOVIR HYDROCHLORIDE
  22. ZESTRIL [Concomitant]
     Active Substance: LISINOPRIL
  23. DIFLUCAN [Concomitant]
     Active Substance: FLUCONAZOLE
  24. EPIPEN [Concomitant]
     Active Substance: EPINEPHRINE
  25. ASCORBIC ACID. [Concomitant]
     Active Substance: ASCORBIC ACID
  26. XYREM [Suspect]
     Active Substance: SODIUM OXYBATE
     Dosage: 9 G, FIRST DOSE
     Route: 048
     Dates: start: 200804, end: 2008
  27. XYREM [Suspect]
     Active Substance: SODIUM OXYBATE
     Dosage: 4.5 G, BID
     Route: 048
     Dates: start: 201108
  28. DENAVIR [Concomitant]
     Active Substance: PENCICLOVIR
  29. FLUTICASONE PROPIONATE. [Concomitant]
     Active Substance: FLUTICASONE PROPIONATE
  30. METHADONE HCL [Concomitant]
     Active Substance: METHADONE HYDROCHLORIDE
  31. SALBUTAMOL [Concomitant]
     Active Substance: ALBUTEROL
  32. VITAMIN B12 [Concomitant]
     Active Substance: CYANOCOBALAMIN

REACTIONS (7)
  - Rotator cuff syndrome [Not Recovered/Not Resolved]
  - Insomnia [Not Recovered/Not Resolved]
  - Tinnitus [Not Recovered/Not Resolved]
  - Musculoskeletal pain [Unknown]
  - Arthropod bite [Unknown]
  - Malaise [Not Recovered/Not Resolved]
  - Ill-defined disorder [Not Recovered/Not Resolved]

NARRATIVE: CASE EVENT DATE: 2016
